FAERS Safety Report 18223404 (Version 4)
Quarter: 2021Q1

REPORT INFORMATION
  Report Type: Spontaneous
  Country: US (occurrence: US)
  Receive Date: 20200902
  Receipt Date: 20210104
  Transmission Date: 20210419
  Serious: Yes (Hospitalization, Other)
  Sender: FDA-Public Use
  Company Number: US-PFIZER INC-2020141373

PATIENT
  Age: 75 Year
  Sex: Male
  Weight: 82.1 kg

DRUGS (3)
  1. REVATIO [Suspect]
     Active Substance: SILDENAFIL CITRATE
     Dosage: 60 MG, 2X/DAY
     Route: 048
  2. REVATIO [Suspect]
     Active Substance: SILDENAFIL CITRATE
     Indication: PULMONARY HYPERTENSION
     Dosage: 80 MG, 3X/DAY (4 TABLETS THREE TIMES A DAY)
     Route: 048
  3. REVATIO [Suspect]
     Active Substance: SILDENAFIL CITRATE
     Dosage: 60 MG, 3X/DAY ( THREE (3) TABLETS THREE TIMES A DAY)

REACTIONS (7)
  - Diarrhoea [Unknown]
  - Respiration abnormal [Unknown]
  - Oxygen saturation abnormal [Unknown]
  - Cardiac failure [Unknown]
  - Fatigue [Unknown]
  - Dehydration [Recovering/Resolving]
  - Prescribed overdose [Unknown]
